FAERS Safety Report 8024249-4 (Version None)
Quarter: 2012Q1

REPORT INFORMATION
  Report Type: 
  Country: None (occurrence: None)
  Receive Date: 20120105
  Receipt Date: 20120103
  Transmission Date: 20120608
  Serious: Yes (Hospitalization, Other)
  Sender: FDA-Public Use
  Company Number: PHFR2011GB006371

PATIENT
  Sex: Female

DRUGS (1)
  1. CLOZARIL [Suspect]
     Indication: SCHIZOPHRENIA
     Dosage: 450 MG,
     Route: 048
     Dates: start: 20010701

REACTIONS (4)
  - URINARY TRACT INFECTION [None]
  - HAEMOGLOBIN INCREASED [None]
  - URINARY INCONTINENCE [None]
  - MENTAL IMPAIRMENT [None]
